FAERS Safety Report 16008227 (Version 2)
Quarter: 2019Q3

REPORT INFORMATION
  Report Type: Spontaneous
  Country: US (occurrence: US)
  Receive Date: 20190226
  Receipt Date: 20190823
  Transmission Date: 20191004
  Serious: Yes (Death, Other)
  Sender: FDA-Public Use
  Company Number: US-ASTRAZENECA-2019SE09407

PATIENT

DRUGS (16)
  1. CLONIDINE. [Concomitant]
     Active Substance: CLONIDINE
  2. GABAPENTIN. [Concomitant]
     Active Substance: GABAPENTIN
  3. BUPROPION. [Concomitant]
     Active Substance: BUPROPION
  4. TRICOR [Concomitant]
     Active Substance: FENOFIBRATE
  5. AZITHROMYCIN ANHYDROUS. [Concomitant]
     Active Substance: AZITHROMYCIN ANHYDROUS
  6. ZOLPIDEM [Concomitant]
     Active Substance: ZOLPIDEM TARTRATE
  7. CRESTOR [Concomitant]
     Active Substance: ROSUVASTATIN CALCIUM
  8. NEXIUM [Suspect]
     Active Substance: ESOMEPRAZOLE MAGNESIUM
     Route: 048
  9. NOVOLOG [Concomitant]
     Active Substance: INSULIN ASPART
  10. HUMALOG [Concomitant]
     Active Substance: INSULIN LISPRO
  11. CEFPROZIL. [Concomitant]
     Active Substance: CEFPROZIL
  12. FAMOTIDINE. [Concomitant]
     Active Substance: FAMOTIDINE
  13. ASPIRIN. [Concomitant]
     Active Substance: ASPIRIN
  14. RANITIDINE. [Concomitant]
     Active Substance: RANITIDINE
  15. LOVAZA [Concomitant]
     Active Substance: OMEGA-3-ACID ETHYL ESTERS
  16. PANTOPRAZOLE [Concomitant]
     Active Substance: PANTOPRAZOLE

REACTIONS (7)
  - Acute kidney injury [Unknown]
  - Chronic kidney disease [Unknown]
  - Nephrogenic anaemia [Unknown]
  - Rebound acid hypersecretion [Unknown]
  - Death [Fatal]
  - Renal failure [Unknown]
  - End stage renal disease [Unknown]
